FAERS Safety Report 10067581 (Version 3)
Quarter: 2014Q2

REPORT INFORMATION
  Report Type: Report from Study
  Country: US (occurrence: US)
  Receive Date: 20140409
  Receipt Date: 20140514
  Transmission Date: 20141212
  Serious: Yes (Hospitalization)
  Sender: FDA-Public Use
  Company Number: US-JNJFOC-20140401873

PATIENT
  Age: 75 Year
  Sex: Male
  Weight: 65.32 kg

DRUGS (21)
  1. REMICADE [Suspect]
     Indication: RHEUMATOID ARTHRITIS
     Route: 042
     Dates: start: 1996
  2. ATENOLOL [Concomitant]
     Route: 048
  3. ALTACE [Concomitant]
     Route: 048
  4. AMBIEN [Concomitant]
     Indication: SLEEP DISORDER
     Route: 048
  5. FOLIC ACID [Concomitant]
     Indication: RHEUMATOID ARTHRITIS
     Route: 048
  6. IMDUR [Concomitant]
     Indication: CARDIAC DISORDER
     Route: 048
  7. LEVOXYL [Concomitant]
     Route: 048
  8. METHOTREXATE [Concomitant]
     Indication: RHEUMATOID ARTHRITIS
     Route: 048
  9. HYDROCODEIN [Concomitant]
     Indication: PAIN
     Dosage: 5-500 MG
     Route: 048
  10. NITROSTAT [Concomitant]
     Indication: CHEST PAIN
     Route: 060
  11. ACETYLSALICYLIC ACID [Concomitant]
     Route: 048
  12. PANTOPRAZOLE [Concomitant]
     Indication: GASTROOESOPHAGEAL REFLUX DISEASE
     Route: 048
  13. XANAX [Concomitant]
     Route: 048
  14. TRAMADOL [Concomitant]
     Indication: PAIN
     Route: 048
  15. LIPITOR [Concomitant]
     Route: 048
  16. PREDNISONE [Concomitant]
     Indication: ADDISON^S DISEASE
     Route: 048
  17. FLUDROCORTISONE [Concomitant]
     Dosage: 1/2 MG EVERY OTHER DAY
     Route: 048
  18. PLAVIX [Concomitant]
     Route: 048
  19. CALCIUM+ D. [Concomitant]
     Route: 048
  20. VITAMIN B12 [Concomitant]
     Route: 048
  21. MIRALAX [Concomitant]
     Route: 065

REACTIONS (3)
  - Gastrointestinal arteriovenous malformation [Recovered/Resolved]
  - Gastrointestinal haemorrhage [Recovered/Resolved]
  - Blood count abnormal [Not Recovered/Not Resolved]
